FAERS Safety Report 23063175 (Version 2)
Quarter: 2023Q4

REPORT INFORMATION
  Report Type: Other
  Country: ZA (occurrence: None)
  Receive Date: 20231013
  Receipt Date: 20231102
  Transmission Date: 20240110
  Serious: Yes (Hospitalization)
  Sender: FDA-Public Use
  Company Number: ZA-ROCHE-3435945

PATIENT
  Sex: Female

DRUGS (1)
  1. OCREVUS [Suspect]
     Active Substance: OCRELIZUMAB
     Indication: Relapsing-remitting multiple sclerosis
     Dosage: THEREAFTER 600MG EVERY 6 MONTHS
     Route: 041
     Dates: start: 20221026

REACTIONS (6)
  - Vision blurred [Unknown]
  - Hypoaesthesia [Unknown]
  - Asthenia [Unknown]
  - Expanded disability status scale score increased [Unknown]
  - Demyelination [Unknown]
  - White matter lesion [Unknown]
